FAERS Safety Report 9917568 (Version 1)
Quarter: 2014Q1

REPORT INFORMATION
  Report Type: Spontaneous
  Country: FR (occurrence: FR)
  Receive Date: 20140221
  Receipt Date: 20140221
  Transmission Date: 20141002
  Serious: Yes (Other)
  Sender: FDA-Public Use
  Company Number: FR-JNJFOC-20140206736

PATIENT
  Age: 88 Year
  Sex: Female

DRUGS (2)
  1. DUROGESIC [Suspect]
     Indication: PAIN
     Route: 062
     Dates: start: 201310, end: 20131120
  2. ACTISKENAN [Suspect]
     Indication: PAIN
     Route: 048
     Dates: start: 201310, end: 20131120

REACTIONS (6)
  - Miosis [Recovered/Resolved]
  - Disturbance in attention [Recovered/Resolved]
  - Respiratory depression [Recovered/Resolved]
  - Myoclonus [Recovered/Resolved]
  - Overdose [Unknown]
  - Dehydration [Unknown]
